FAERS Safety Report 9173787 (Version 1)
Quarter: 2013Q1

REPORT INFORMATION
  Report Type: Spontaneous
  Country: US (occurrence: None)
  Receive Date: 20130318
  Receipt Date: 20130318
  Transmission Date: 20140127
  Serious: Yes (Other)
  Sender: FDA-Public Use
  Company Number: ACO_34713_2013

PATIENT
  Sex: Female

DRUGS (16)
  1. AMPYRA DALFAMPRIDINE) TABLET, 10MG [Suspect]
     Indication: GAIT DISTURBANCE
     Route: 048
  2. GILENYA (FINGOLIMOD HYDROCHLORIDE) [Concomitant]
  3. METHOCARBAMOL (METHOCARBAMOL) [Concomitant]
  4. ALLERGY MEDICATION [Concomitant]
  5. FOLIC ACID (FOLIC ACID) [Concomitant]
  6. FUROSEMIDE (FUROSEMIDE) [Concomitant]
  7. CYCLOBENZAPRINE (CYCLOBENZAPRINE HYDROCHLORIDE) [Concomitant]
  8. NUVIGIL (ARMODAFINIL) [Concomitant]
  9. LEVOTHYROXINE (LEVOTHYROXINE) [Concomitant]
  10. PREMARIN (ESTROGENS CONJUGATED) [Concomitant]
  11. VIMPAT (LACOSAMIDE) [Concomitant]
  12. VITAMIN D (ERGOCALCIFEROL) [Concomitant]
  13. ALPRAZOLAM (ALPRAZOLAM) [Concomitant]
  14. LOVAZA (OMEGA-3-ACID ETHYL ESTER) [Concomitant]
  15. MULTIVITAMIN (VITAMINS NOS) [Concomitant]
  16. HYDROCODONE (HYDROCODONE) [Concomitant]

REACTIONS (5)
  - Convulsion [None]
  - Dehydration [None]
  - Dizziness postural [None]
  - Fall [None]
  - Balance disorder [None]
